FAERS Safety Report 16508689 (Version 1)
Quarter: 2019Q3

REPORT INFORMATION
  Report Type: Spontaneous
  Country: US (occurrence: US)
  Receive Date: 20190702
  Receipt Date: 20190702
  Transmission Date: 20191004
  Serious: Yes (Other)
  Sender: FDA-Public Use
  Company Number: US-ROCHE-2186897

PATIENT
  Age: 38 Year
  Sex: Female

DRUGS (3)
  1. XELODA [Suspect]
     Active Substance: CAPECITABINE
     Indication: PRODUCT USED FOR UNKNOWN INDICATION
     Dosage: 7 DAYD ON AND 7 DAYS OFF
     Route: 048
     Dates: start: 20180824
  2. XELODA [Suspect]
     Active Substance: CAPECITABINE
     Dosage: ONGOING: YES
     Route: 048
     Dates: start: 20180823
  3. XELODA [Suspect]
     Active Substance: CAPECITABINE
     Dosage: 7 DAYD ON AND 7 DAYS OFF
     Route: 048

REACTIONS (1)
  - Palmar-plantar erythrodysaesthesia syndrome [Unknown]

NARRATIVE: CASE EVENT DATE: 20180917
